FAERS Safety Report 7040846-7 (Version None)
Quarter: 2010Q3

REPORT INFORMATION
  Report Type: 
  Country: None (occurrence: None)
  Receive Date: 20100929
  Receipt Date: 20100820
  Transmission Date: 20110219
  Serious: No
  Sender: FDA-Public Use
  Company Number: US-WYE-H17163910

PATIENT
  Age: 57 Year
  Sex: Female
  Weight: 70.37 kg

DRUGS (4)
  1. PRISTIQ [Suspect]
     Indication: DEPRESSION
     Dosage: 50 MG 1X PER 1 DAY, ORAL
     Route: 048
     Dates: start: 20100801
  2. LITHIUM CARBONATE [Concomitant]
  3. KLONOPIN [Concomitant]
  4. MULTI-VITAMINS [Concomitant]

REACTIONS (2)
  - HEADACHE [None]
  - NAUSEA [None]
